FAERS Safety Report 4617567-0 (Version None)
Quarter: 2005Q1

REPORT INFORMATION
  Report Type: 
  Country: None (occurrence: None)
  Receive Date: 20050322
  Receipt Date: 20050309
  Transmission Date: 20050727
  Serious: Yes (Disabling, Other)
  Sender: FDA-Public Use
  Company Number: 2004-10-1012

PATIENT
  Age: 53 Year
  Sex: Female
  Weight: 117.028 kg

DRUGS (10)
  1. CLARITIN [Suspect]
     Indication: HYPERSENSITIVITY
     Dosage: ORAL
     Route: 048
     Dates: start: 20020101, end: 20020701
  2. CLARITIN REDITABS [Suspect]
     Dosage: ORAL
     Route: 048
     Dates: start: 20020101, end: 20020701
  3. NEURONTIN [Concomitant]
  4. CELEBREX [Concomitant]
  5. COUMADIN [Concomitant]
  6. GLUCOPHAGE [Concomitant]
  7. PRILOSEC [Concomitant]
  8. SYNTHROID [Concomitant]
  9. LIPITOR [Concomitant]
  10. COZAAR [Concomitant]

REACTIONS (7)
  - ANXIETY [None]
  - CHOLECYSTECTOMY [None]
  - DIABETES MELLITUS [None]
  - HEPATITIS A [None]
  - HEPATITIS C [None]
  - HEPATOTOXICITY [None]
  - PAIN [None]
